FAERS Safety Report 25885164 (Version 1)
Quarter: 2025Q4

REPORT INFORMATION
  Report Type: Spontaneous
  Country: US (occurrence: US)
  Receive Date: 20251006
  Receipt Date: 20251006
  Transmission Date: 20260117
  Serious: No
  Sender: BRISTOL-MYERS SQUIBB COMPANY
  Company Number: US-BRISTOL-MYERS SQUIBB COMPANY-2025-135980

PATIENT
  Age: 85 Year
  Sex: Female
  Weight: 72.3 kg

DRUGS (1)
  1. ELIQUIS [Suspect]
     Active Substance: APIXABAN
     Indication: Cardiac disorder
     Dates: start: 202509

REACTIONS (6)
  - Haemorrhage [Unknown]
  - Insomnia [Unknown]
  - Chills [Unknown]
  - Feeling abnormal [Unknown]
  - Aphonia [Unknown]
  - Abdominal discomfort [Unknown]

NARRATIVE: CASE EVENT DATE: 20250930
